FAERS Safety Report 5533430-5 (Version None)
Quarter: 2007Q4

REPORT INFORMATION
  Report Type: 
  Country: None (occurrence: None)
  Receive Date: 20071204
  Receipt Date: 20071122
  Transmission Date: 20080405
  Serious: Yes (Other)
  Sender: FDA-Public Use
  Company Number: JP-PFIZER INC-2007090242

PATIENT
  Sex: Female
  Weight: 73 kg

DRUGS (3)
  1. AROMASIN [Suspect]
     Indication: BREAST CANCER
     Route: 048
     Dates: start: 20060831, end: 20061101
  2. NEUROTROPIN [Concomitant]
     Route: 048
     Dates: start: 20060727, end: 20061101
  3. KEISHIBUKURYOUGAN [Concomitant]
     Route: 048
     Dates: start: 20060727, end: 20061101

REACTIONS (1)
  - HYPOTHYROIDISM [None]
